FAERS Safety Report 4808545-7 (Version None)
Quarter: 2005Q4

REPORT INFORMATION
  Report Type: 
  Country: None (occurrence: None)
  Receive Date: 20051021
  Receipt Date: 20020208
  Transmission Date: 20060501
  Serious: No
  Sender: FDA-Public Use
  Company Number: US_020281861

PATIENT
  Age: 69 Year
  Sex: Female

DRUGS (4)
  1. ZYPREXA [Suspect]
     Indication: SCHIZOPHRENIA
     Route: 048
     Dates: start: 20021017
  2. VITAMIN A [Concomitant]
  3. SILECE       (FLUNITRAZEPAM) [Concomitant]
  4. SENNOSIDE [Concomitant]

REACTIONS (1)
  - WHITE BLOOD CELL COUNT DECREASED [None]
